FAERS Safety Report 5979617-9 (Version None)
Quarter: 2008Q4

REPORT INFORMATION
  Report Type: 
  Country: None (occurrence: None)
  Receive Date: 20081204
  Receipt Date: 20081124
  Transmission Date: 20090506
  Serious: Yes (Hospitalization)
  Sender: FDA-Public Use
  Company Number: PL-WATSON-2008-06979

PATIENT

DRUGS (2)
  1. FIORICET [Suspect]
     Indication: PYREXIA
     Dosage: 120MG/5ML
  2. IBUPROFEN (WATSON LABORATORIES) [Suspect]
     Indication: PYREXIA
     Dosage: 100MG/ML

REACTIONS (1)
  - GASTRITIS HAEMORRHAGIC [None]
